FAERS Safety Report 20137036 (Version 1)
Quarter: 2021Q4

REPORT INFORMATION
  Report Type: Spontaneous
  Country: US (occurrence: US)
  Receive Date: 20211201
  Receipt Date: 20211201
  Transmission Date: 20220303
  Serious: Yes (Death)
  Sender: FDA-Public Use
  Company Number: US-PFIZER INC-202101646905

PATIENT
  Age: 72 Year
  Sex: Male

DRUGS (1)
  1. THYMOCYTE IMMUNE GLOBULIN NOS [Suspect]
     Active Substance: THYMOCYTE IMMUNE GLOBULIN NOS
     Dosage: 2 MG/KG, DAILY FOR 2 DAYS

REACTIONS (2)
  - Transplant failure [Fatal]
  - Drug ineffective [Fatal]
